FAERS Safety Report 6662307-7 (Version None)
Quarter: 2010Q1

REPORT INFORMATION
  Report Type: 
  Country: None (occurrence: None)
  Receive Date: 20100331
  Receipt Date: 20100319
  Transmission Date: 20100710
  Serious: Yes (Other)
  Sender: FDA-Public Use
  Company Number: US-CELGENEUS-163-21880-10031897

PATIENT
  Sex: Female

DRUGS (2)
  1. REVLIMID [Suspect]
     Route: 048
     Dates: start: 20091202
  2. REVLIMID [Suspect]
     Dosage: 10-5MG
     Route: 048
     Dates: start: 20090701, end: 20090101

REACTIONS (6)
  - BLOOD COUNT ABNORMAL [None]
  - DIARRHOEA [None]
  - EYE DISORDER [None]
  - INSOMNIA [None]
  - URINARY TRACT INFECTION [None]
  - VISUAL ACUITY REDUCED [None]
